FAERS Safety Report 25668409 (Version 1)
Quarter: 2025Q3

REPORT INFORMATION
  Report Type: Spontaneous
  Country: TW (occurrence: TW)
  Receive Date: 20250812
  Receipt Date: 20250812
  Transmission Date: 20251021
  Serious: Yes (Death)
  Sender: AMGEN
  Company Number: TW-AMGEN-TWNSP2025154995

PATIENT

DRUGS (1)
  1. PROLIA [Suspect]
     Active Substance: DENOSUMAB
     Indication: Osteoporosis
     Route: 065

REACTIONS (5)
  - Death [Fatal]
  - Fracture [Unknown]
  - Glomerular filtration rate decreased [Unknown]
  - Osteoporosis [Unknown]
  - Iron deficiency anaemia [Unknown]
